FAERS Safety Report 8596267 (Version 2)
Quarter: 2012Q4

REPORT INFORMATION
  Report Type: 
  Country: US (occurrence: US)
  Receive Date: 20120605
  Receipt Date: 20121022
  Transmission Date: 20130627
  Serious: Yes (Hospitalization)
  Sender: FDA-Public Use
  Company Number: US-BAYER-2012-054828

PATIENT
  Age: 20 Year
  Sex: Female
  Weight: 86.17 kg

DRUGS (12)
  1. YAZ [Suspect]
     Indication: CONTRACEPTION
     Dosage: UNK
     Dates: start: 200803, end: 201003
  2. YAZ [Suspect]
     Indication: PREMENSTRUAL SYNDROME
  3. LORTAB [Concomitant]
  4. PHENERGAN [Concomitant]
  5. ADVIL [Concomitant]
  6. TAGAMET [Concomitant]
  7. ATROPA BELLADONNA [Concomitant]
  8. MORPHINE [Concomitant]
  9. TORADOL [Concomitant]
  10. VALIUM [Concomitant]
  11. ZOFRAN [Concomitant]
  12. ROBAXIN [Concomitant]

REACTIONS (11)
  - Cholelithiasis [None]
  - Cholecystitis chronic [None]
  - Biliary colic [None]
  - Injury [None]
  - Pain [None]
  - Mental disorder [None]
  - Deformity [None]
  - Pain [None]
  - Gastric disorder [None]
  - Post procedural diarrhoea [None]
  - Dyspepsia [None]
